FAERS Safety Report 23135803 (Version 1)
Quarter: 2023Q4

REPORT INFORMATION
  Report Type: Spontaneous
  Country: MX (occurrence: MX)
  Receive Date: 20231101
  Receipt Date: 20231101
  Transmission Date: 20240110
  Serious: Yes (Hospitalization, Other)
  Sender: FDA-Public Use
  Company Number: MX-BAXTER-2023BAX034453

PATIENT

DRUGS (2)
  1. SODIUM CHLORIDE [Suspect]
     Active Substance: SODIUM CHLORIDE
     Indication: Medication dilution
     Dosage: 100 MILLILITERS (ML), 30 ML/HR
     Route: 065
     Dates: start: 20231022
  2. NOREPINEPHRINE [Suspect]
     Active Substance: NOREPINEPHRINE
     Dosage: 30 ML/HR
     Route: 065
     Dates: start: 20231022

REACTIONS (3)
  - Cardiac arrest [Recovering/Resolving]
  - Incorrect drug administration rate [Unknown]
  - Device infusion issue [Unknown]

NARRATIVE: CASE EVENT DATE: 20231022
